FAERS Safety Report 18164677 (Version 1)
Quarter: 2020Q3

REPORT INFORMATION
  Report Type: Report from Study
  Country: None (occurrence: US)
  Receive Date: 20200819
  Receipt Date: 20200819
  Transmission Date: 20201103
  Serious: Yes (Hospitalization, Other)
  Sender: FDA-Public Use
  Company Number: US-ABBVIE-20K-163-3517108-00

PATIENT
  Age: 81 Year
  Sex: Female
  Weight: 75.36 kg

DRUGS (2)
  1. HUMIRA [Suspect]
     Active Substance: ADALIMUMAB
     Indication: RHEUMATOID ARTHRITIS
     Route: 058
     Dates: start: 201505, end: 20200402
  2. ALLOPURINOL. [Concomitant]
     Active Substance: ALLOPURINOL
     Indication: GOUT

REACTIONS (4)
  - Postoperative wound infection [Recovering/Resolving]
  - Impaired healing [Unknown]
  - Ileostomy [Recovering/Resolving]
  - Volvulus [Recovering/Resolving]

NARRATIVE: CASE EVENT DATE: 20200417
